FAERS Safety Report 5361438-1 (Version None)
Quarter: 2007Q2

REPORT INFORMATION
  Report Type: 
  Country: None (occurrence: None)
  Receive Date: 20070530
  Receipt Date: 20070212
  Transmission Date: 20071010
  Serious: No
  Sender: FDA-Public Use
  Company Number: 2007PV029927

PATIENT
  Age: 56 Year
  Sex: Female
  Weight: 117.9352 kg

DRUGS (3)
  1. BYETTA [Suspect]
     Indication: DIABETES MELLITUS NON-INSULIN-DEPENDENT
     Dosage: 5 MCG;QD;SC;5;MCG;BID;SC;10;MCG;SC
     Route: 058
     Dates: start: 20070125, end: 20070210
  2. BYETTA [Suspect]
     Indication: DIABETES MELLITUS NON-INSULIN-DEPENDENT
     Dosage: 5 MCG;QD;SC;5;MCG;BID;SC;10;MCG;SC
     Route: 058
     Dates: start: 20070211
  3. GLIMEPIRIDE [Concomitant]

REACTIONS (5)
  - ABDOMINAL DISTENSION [None]
  - BLOOD GLUCOSE FLUCTUATION [None]
  - DECREASED APPETITE [None]
  - INJECTION SITE IRRITATION [None]
  - NAUSEA [None]
